FAERS Safety Report 24107195 (Version 1)
Quarter: 2024Q3

REPORT INFORMATION
  Report Type: Spontaneous
  Country: DK (occurrence: DK)
  Receive Date: 20240718
  Receipt Date: 20240718
  Transmission Date: 20241017
  Serious: Yes (Hospitalization)
  Sender: NOVO NORDISK
  Company Number: None

PATIENT
  Age: 73 Year
  Sex: Male
  Weight: 90 kg

DRUGS (4)
  1. ASPIRIN [Concomitant]
     Active Substance: ASPIRIN
     Indication: Thrombosis prophylaxis
     Dosage: UNK
     Dates: start: 20180122
  2. SIMVASTATIN [Concomitant]
     Active Substance: SIMVASTATIN
     Dosage: UNKNOWN START DATE
  3. WEGOVY [Suspect]
     Active Substance: SEMAGLUTIDE
     Indication: Obesity
     Dosage: 1 MG, QD
     Dates: start: 202309
  4. LOSARTAN POTASSIUM [Concomitant]
     Active Substance: LOSARTAN POTASSIUM
     Indication: Hypertension
     Dosage: UNK
     Dates: start: 20220601

REACTIONS (1)
  - Fall [Not Recovered/Not Resolved]

NARRATIVE: CASE EVENT DATE: 20231222
